FAERS Safety Report 16960310 (Version 3)
Quarter: 2019Q4

REPORT INFORMATION
  Report Type: Spontaneous
  Country: US (occurrence: US)
  Receive Date: 20191025
  Receipt Date: 20191029
  Transmission Date: 20200122
  Serious: No
  Sender: FDA-Public Use
  Company Number: US-PFIZER INC-2019278255

PATIENT
  Age: 70 Year
  Sex: Male
  Weight: 74 kg

DRUGS (7)
  1. VFEND [Suspect]
     Active Substance: VORICONAZOLE
     Indication: FUNGAL INFECTION
     Dosage: 300 MG, 2X/DAY (1.5 TABLETS EVERY 12 HOURS)
     Route: 048
     Dates: start: 201904
  2. VFEND [Suspect]
     Active Substance: VORICONAZOLE
     Indication: FUNGAL INFECTION
     Dosage: 700MG, DAILY (1.5 TABLETS OF 200MG IN THE MORNING, AND 2 TABLETS OF 200MG IN THE EVENING)
     Dates: start: 201906
  3. VFEND [Suspect]
     Active Substance: VORICONAZOLE
     Dosage: 700 MG, DAILY [200MG TABS,1.5 TABLETS(300MG) IN THE MORNING + 2 TABS (400MG) IN THE EVENING]
  4. VFEND [Suspect]
     Active Substance: VORICONAZOLE
     Indication: SKIN INFECTION
     Dosage: 200 MG, 2X/DAY
     Dates: start: 201906
  5. VFEND [Suspect]
     Active Substance: VORICONAZOLE
     Dosage: UNK UNK, 2X/DAY
  6. VFEND [Suspect]
     Active Substance: VORICONAZOLE
     Indication: RASH
     Dosage: 400 MG, 2X/DAY (TWO TABLETS EVERY 12 HOURS)
     Dates: start: 201906
  7. VFEND [Suspect]
     Active Substance: VORICONAZOLE
     Indication: INFECTION
     Dosage: 200 MG, 2X/DAY

REACTIONS (4)
  - Abdominal discomfort [Unknown]
  - Product use issue [Unknown]
  - Product dose omission [Unknown]
  - Off label use [Unknown]
